FAERS Safety Report 16867401 (Version 1)
Quarter: 2019Q3

REPORT INFORMATION
  Report Type: Spontaneous
  Country: US (occurrence: US)
  Receive Date: 20190806
  Receipt Date: 20190806
  Transmission Date: 20191005
  Serious: No
  Sender: FDA-Public Use
  Company Number: None

PATIENT
  Age: 56 Year
  Sex: Female

DRUGS (1)
  1. CAPECITABINE TAB 500MG [Suspect]
     Active Substance: CAPECITABINE
     Indication: BREAST CANCER
     Dates: start: 201810, end: 201908

REACTIONS (5)
  - Swollen tongue [None]
  - Lip exfoliation [None]
  - Dry skin [None]
  - Skin exfoliation [None]
  - Drug ineffective [None]

NARRATIVE: CASE EVENT DATE: 20190806
